FAERS Safety Report 18508151 (Version 3)
Quarter: 2021Q1

REPORT INFORMATION
  Report Type: Spontaneous
  Country: US (occurrence: US)
  Receive Date: 20201116
  Receipt Date: 20210331
  Transmission Date: 20210419
  Serious: No
  Sender: FDA-Public Use
  Company Number: US-PFIZER INC-2020446924

PATIENT
  Age: 71 Year
  Sex: Female
  Weight: 70.31 kg

DRUGS (1)
  1. XELJANZ [Suspect]
     Active Substance: TOFACITINIB CITRATE
     Indication: PSORIATIC ARTHROPATHY
     Dosage: 5 MG, 2X/DAY (1 TABLET BY MOUTH TWICE A DAY)
     Route: 048
     Dates: start: 20200921

REACTIONS (8)
  - Nausea [Unknown]
  - Mobility decreased [Unknown]
  - Body height decreased [Unknown]
  - Lip infection [Unknown]
  - Hip deformity [Unknown]
  - Hand deformity [Unknown]
  - Oral herpes [Recovering/Resolving]
  - Stomatitis [Not Recovered/Not Resolved]

NARRATIVE: CASE EVENT DATE: 202010
